FAERS Safety Report 15946982 (Version 2)
Quarter: 2019Q1

REPORT INFORMATION
  Report Type: Spontaneous
  Country: US (occurrence: US)
  Receive Date: 20190212
  Receipt Date: 20190329
  Transmission Date: 20190417
  Serious: No
  Sender: FDA-Public Use
  Company Number: US-ASTRAZENECA-2019SE17640

PATIENT
  Age: 15801 Day
  Sex: Female
  Weight: 85.7 kg

DRUGS (1)
  1. BYDUREON [Suspect]
     Active Substance: EXENATIDE
     Indication: BACK PAIN
     Route: 058
     Dates: start: 20181020

REACTIONS (5)
  - Injection site pain [Unknown]
  - Product dose omission [Unknown]
  - Needle issue [Unknown]
  - Crohn^s disease [Unknown]
  - Device malfunction [Unknown]

NARRATIVE: CASE EVENT DATE: 20181020
